FAERS Safety Report 12154768 (Version 2)
Quarter: 2016Q2

REPORT INFORMATION
  Report Type: Spontaneous
  Country: BE (occurrence: BE)
  Receive Date: 20160307
  Receipt Date: 20160408
  Transmission Date: 20160815
  Serious: Yes (Life-Threatening)
  Sender: FDA-Public Use
  Company Number: BE-B.I. PHARMACEUTICALS,INC./RIDGEFIELD-2016-BI-12504BL

PATIENT
  Age: 71 Year
  Sex: Male
  Weight: 100 kg

DRUGS (2)
  1. METFORMINE [Concomitant]
     Active Substance: METFORMIN HYDROCHLORIDE
     Indication: DIABETES MELLITUS
     Dosage: 2550 NR
     Route: 048
  2. JARDIANCE [Suspect]
     Active Substance: EMPAGLIFLOZIN
     Indication: TYPE 2 DIABETES MELLITUS
     Dosage: 25 MG
     Route: 048
     Dates: start: 20150924, end: 20160106

REACTIONS (1)
  - Ketosis [Recovered/Resolved]

NARRATIVE: CASE EVENT DATE: 20160104
